FAERS Safety Report 5736718-8 (Version None)
Quarter: 2008Q2

REPORT INFORMATION
  Report Type: 
  Country: None (occurrence: None)
  Receive Date: 20080513
  Receipt Date: 20080504
  Transmission Date: 20081010
  Serious: Yes (Hospitalization)
  Sender: FDA-Public Use
  Company Number: PHEH2008US04331

PATIENT
  Age: 84 Year
  Sex: Female

DRUGS (1)
  1. EXELON [Suspect]
     Indication: DEMENTIA ALZHEIMER'S TYPE
     Dosage: 9.5 MG, QD
     Route: 062
     Dates: start: 20080304, end: 20080407

REACTIONS (2)
  - GASTROINTESTINAL HAEMORRHAGE [None]
  - GASTROINTESTINAL ISCHAEMIA [None]
